FAERS Safety Report 23290745 (Version 2)
Quarter: 2024Q1

REPORT INFORMATION
  Report Type: Spontaneous
  Country: US (occurrence: US)
  Receive Date: 20231213
  Receipt Date: 20240318
  Transmission Date: 20240410
  Serious: No
  Sender: FDA-Public Use
  Company Number: US-ALVOGEN-2023092560

PATIENT

DRUGS (1)
  1. LISDEXAMFETAMINE [Suspect]
     Active Substance: LISDEXAMFETAMINE
     Indication: Attention deficit hyperactivity disorder
     Dosage: EXPIRATION DATE: UU-NOV-2024?CII, 100 COUNT.

REACTIONS (13)
  - Condition aggravated [Unknown]
  - Flat affect [Unknown]
  - Brain fog [Unknown]
  - Emotional distress [Unknown]
  - Fatigue [Unknown]
  - Cognitive disorder [Unknown]
  - Tremor [Unknown]
  - Tachycardia [Unknown]
  - Dizziness [Unknown]
  - Depressed mood [Unknown]
  - Headache [Unknown]
  - Irritability [Unknown]
  - Drug effect less than expected [Unknown]
